FAERS Safety Report 25589937 (Version 1)
Quarter: 2025Q3

REPORT INFORMATION
  Report Type: Spontaneous
  Country: US (occurrence: None)
  Receive Date: 20250721
  Receipt Date: 20250721
  Transmission Date: 20251020
  Serious: Yes (Life-Threatening, Disabling, Other)
  Sender: FDA-CTU
  Company Number: None

PATIENT
  Age: 49 Year
  Sex: Female
  Weight: 47.25 kg

DRUGS (4)
  1. SULFAMETHOXAZOLE\TRIMETHOPRIM [Suspect]
     Active Substance: SULFAMETHOXAZOLE\TRIMETHOPRIM
     Indication: Urinary tract infection
     Dosage: 14 TABLET(S) EVERY 12 HOURS ORAL ?
     Route: 048
     Dates: start: 20250716, end: 20250717
  2. BENADRYL [Concomitant]
     Active Substance: DIPHENHYDRAMINE HYDROCHLORIDE
  3. CALAMINE LOTION [Concomitant]
     Active Substance: CALAMINE LOTION
  4. AVEENO [Concomitant]
     Active Substance: DIMETHICONE\HOMOSALATE\OCTINOXATE\OCTISALATE\TITANIUM DIOXIDE

REACTIONS (13)
  - Pruritus [None]
  - Lip swelling [None]
  - Urticaria [None]
  - Therapy cessation [None]
  - Peripheral swelling [None]
  - Peripheral swelling [None]
  - Mechanical urticaria [None]
  - Dyspnoea [None]
  - Neuralgia [None]
  - Insomnia [None]
  - Gait disturbance [None]
  - Dysstasia [None]
  - Burning sensation [None]

NARRATIVE: CASE EVENT DATE: 20250718
